FAERS Safety Report 10934231 (Version 1)
Quarter: 2015Q1

REPORT INFORMATION
  Report Type: Spontaneous
  Country: JP (occurrence: JP)
  Receive Date: 20150320
  Receipt Date: 20150320
  Transmission Date: 20150721
  Serious: Yes (Other)
  Sender: FDA-Public Use
  Company Number: JP-009507513-1502JPN011924

PATIENT
  Age: 95 Year
  Sex: Female

DRUGS (12)
  1. TIENAM FOR INTRAVENOUS DRIP INFUSION [Suspect]
     Active Substance: CILASTATIN SODIUM\IMIPENEM
     Indication: NASOPHARYNGITIS
     Dosage: 20 ML,QD
     Route: 041
     Dates: start: 20150123, end: 20150123
  2. MAGMITT [Concomitant]
     Active Substance: MAGNESIUM OXIDE
     Dosage: DAILY DOSE UNKNOWN
     Route: 065
  3. TOUGHMAC E [Concomitant]
     Active Substance: AMYLASE\LIPASE\PROTEASE
     Dosage: DAILY DOSAGE UNKNOWN
     Route: 065
  4. ASPARA K [Concomitant]
     Active Substance: POTASSIUM ASPARTATE
     Dosage: DAILY DOSE UNKNOWN
     Route: 065
  5. GLYCYRRHIZA [Concomitant]
     Active Substance: LICORICE
     Dosage: DAILY DOSE UNKNOWN
     Route: 048
  6. SULPERAZON (CEFOPERAZONE SODIUM (+) SULBACTAM SODIUM) [Concomitant]
     Dosage: DAILY DOSE UNKNOWN
     Route: 051
  7. TIENAM FOR INTRAVENOUS DRIP INFUSION [Suspect]
     Active Substance: CILASTATIN SODIUM\IMIPENEM
     Dosage: TOTAL DAILY DOSE UNKNOWN
     Route: 041
  8. ALFAROL [Concomitant]
     Active Substance: ALFACALCIDOL
     Dosage: DAILY DOSE UNKNOWN
     Route: 065
  9. OMEPRAL [Concomitant]
     Active Substance: OMEPRAZOLE
     Dosage: DAILY DOSE UNKNOWN
     Route: 065
  10. BIOFERMIN (BACILLUS SUBTILIS (+) LACTOBACILLUS ACIDOPHILUS (+) STREPTO [Concomitant]
     Active Substance: BACILLUS SUBTILIS\LACTOBACILLUS ACIDOPHILUS\STREPTOCOCCUS FAECAIS
     Dosage: DAILY DOSE UNKNOWN
     Route: 065
  11. AMOBAN [Concomitant]
     Active Substance: ZOPICLONE
     Dosage: DAILY DOSE UNKNOWN
     Route: 065
  12. BAYASPIRIN [Concomitant]
     Active Substance: ASPIRIN
     Dosage: DAILY DOSE UNKNOWN
     Route: 065

REACTIONS (2)
  - Erythema [Recovered/Resolved]
  - Pruritus [Recovered/Resolved]

NARRATIVE: CASE EVENT DATE: 20150123
